FAERS Safety Report 8842793 (Version 1)
Quarter: 2012Q4

REPORT INFORMATION
  Report Type: 
  Country: US (occurrence: US)
  Receive Date: 20121016
  Receipt Date: 20121016
  Transmission Date: 20130627
  Serious: Yes (Hospitalization)
  Sender: FDA-Public Use
  Company Number: US-ELI_LILLY_AND_COMPANY-US201210001775

PATIENT
  Sex: Female

DRUGS (2)
  1. STRATTERA [Suspect]
     Dosage: 100 mg, unknown
  2. TOPAMAX [Concomitant]

REACTIONS (2)
  - Mania [Recovered/Resolved]
  - Drug interaction [Recovered/Resolved]
